FAERS Safety Report 9715369 (Version 1)
Quarter: 2013Q4

REPORT INFORMATION
  Report Type: Spontaneous
  Country: US (occurrence: US)
  Receive Date: 20131127
  Receipt Date: 20131127
  Transmission Date: 20140711
  Serious: No
  Sender: FDA-Public Use
  Company Number: US-009507513-1309USA011191

PATIENT
  Sex: Male

DRUGS (2)
  1. CLARITIN LIQUIGELS [Suspect]
     Indication: NASAL DISCOMFORT
     Dosage: 100 MG, UNKNOWN
     Route: 048
     Dates: start: 20130916, end: 20130917
  2. ADVIL [Suspect]
     Indication: PRODUCT USED FOR UNKNOWN INDICATION
     Dosage: UNK, UNKNOWN
     Route: 048

REACTIONS (4)
  - Rash [Unknown]
  - Overdose [Unknown]
  - Headache [Unknown]
  - Pyrexia [Unknown]
